FAERS Safety Report 24741731 (Version 2)
Quarter: 2024Q4

REPORT INFORMATION
  Report Type: Spontaneous
  Country: JP (occurrence: JP)
  Receive Date: 20241217
  Receipt Date: 20241231
  Transmission Date: 20250115
  Serious: Yes (Death, Hospitalization)
  Sender: ROCHE
  Company Number: JP-CHUGAI-2024042957

PATIENT
  Age: 63 Year
  Sex: Female
  Weight: 92 kg

DRUGS (6)
  1. AVASTIN [Suspect]
     Active Substance: BEVACIZUMAB
     Indication: Hepatocellular carcinoma
     Dosage: 1335 MILLIGRAM
     Route: 042
     Dates: start: 20240712, end: 20241101
  2. TECENTRIQ [Suspect]
     Active Substance: ATEZOLIZUMAB
     Indication: Hepatocellular carcinoma
     Dosage: 1200 MILLIGRAM
     Route: 042
     Dates: start: 20240712, end: 20241101
  3. LIVACT [ISOLEUCINE;LEUCINE;VALINE] [Concomitant]
     Dosage: UNK
     Route: 065
  4. SPIRONOLACTONE [Concomitant]
     Active Substance: SPIRONOLACTONE
     Dosage: UNK
     Route: 065
  5. FUROSEMIDE [Concomitant]
     Active Substance: FUROSEMIDE
     Dosage: UNK
     Route: 065
  6. OLOPATADINE [OLOPATADINE HYDROCHLORIDE] [Concomitant]
     Dosage: UNK
     Route: 065

REACTIONS (3)
  - Nephropathy toxic [Recovering/Resolving]
  - Drug-induced liver injury [Recovering/Resolving]
  - Hepatocellular carcinoma [Fatal]

NARRATIVE: CASE EVENT DATE: 20241122
